FAERS Safety Report 4475491-0 (Version None)
Quarter: 2004Q4

REPORT INFORMATION
  Report Type: 
  Country: None (occurrence: None)
  Receive Date: 20041015
  Receipt Date: 20041012
  Transmission Date: 20050328
  Serious: Yes (Disabling)
  Sender: FDA-Public Use
  Company Number: US-MERCK-0410USA01757

PATIENT
  Sex: Female

DRUGS (1)
  1. ZOCOR [Suspect]
     Indication: BLOOD CHOLESTEROL INCREASED
     Route: 048
     Dates: start: 20040801, end: 20040801

REACTIONS (1)
  - PAIN IN EXTREMITY [None]
